FAERS Safety Report 7155201-9 (Version None)
Quarter: 2010Q4

REPORT INFORMATION
  Report Type: 
  Country: None (occurrence: None)
  Receive Date: 20101214
  Receipt Date: 20091203
  Transmission Date: 20110411
  Serious: No
  Sender: FDA-Public Use
  Company Number: US-AMGEN-KDL374750

PATIENT

DRUGS (5)
  1. ENBREL [Suspect]
     Indication: PSORIATIC ARTHROPATHY
     Dosage: 25 MG, 2 TIMES/WK
     Route: 058
     Dates: start: 20041023
  2. ENBREL [Suspect]
     Indication: PSORIASIS
  3. SULFASALAZINE [Concomitant]
     Dosage: 500 MG, BID
     Route: 048
  4. OMEPRAZOLE [Concomitant]
  5. PRENATAL VITAMINS [Concomitant]

REACTIONS (1)
  - PSORIATIC ARTHROPATHY [None]
